FAERS Safety Report 7798881-7 (Version None)
Quarter: 2011Q4

REPORT INFORMATION
  Report Type: 
  Country: None (occurrence: None)
  Receive Date: 20111005
  Receipt Date: 20111005
  Transmission Date: 20120403
  Serious: No
  Sender: FDA-Public Use
  Company Number: None

PATIENT
  Age: 46 Year
  Sex: Female
  Weight: 68.2 kg

DRUGS (1)
  1. IBUPROFEN [Suspect]
     Dosage: 600 MG QID PO
     Route: 048
     Dates: start: 20100203, end: 20110628

REACTIONS (1)
  - GASTRIC HAEMORRHAGE [None]
